FAERS Safety Report 5744994-0 (Version None)
Quarter: 2008Q2

REPORT INFORMATION
  Report Type: 
  Country: None (occurrence: None)
  Receive Date: 20080521
  Receipt Date: 20080512
  Transmission Date: 20081010
  Serious: Yes (Hospitalization, Other)
  Sender: FDA-Public Use
  Company Number: US-JNJFOC-20080400495

PATIENT
  Sex: Male
  Weight: 83.46 kg

DRUGS (9)
  1. REMICADE [Suspect]
     Dosage: HAD ONLY RECEIVED 40 MG
     Route: 042
  2. REMICADE [Suspect]
     Route: 042
  3. REMICADE [Suspect]
     Indication: CROHN'S DISEASE
     Route: 042
  4. TYLENOL [Concomitant]
     Indication: PREMEDICATION
  5. BENADRYL [Concomitant]
     Indication: PREMEDICATION
  6. ZOLOFT [Concomitant]
  7. PENTASA [Concomitant]
  8. PREVACID [Concomitant]
  9. IMURAN [Concomitant]

REACTIONS (8)
  - BLOOD PRESSURE DECREASED [None]
  - CHEST PAIN [None]
  - ELECTROCARDIOGRAM ST SEGMENT ELEVATION [None]
  - ERYTHEMA [None]
  - HEART RATE INCREASED [None]
  - INFUSION RELATED REACTION [None]
  - PRURITUS [None]
  - SWELLING [None]
